FAERS Safety Report 20510217 (Version 1)
Quarter: 2022Q1

REPORT INFORMATION
  Report Type: Report from Study
  Country: US (occurrence: US)
  Receive Date: 20220224
  Receipt Date: 20220224
  Transmission Date: 20220423
  Serious: Yes (Hospitalization)
  Sender: FDA-Public Use
  Company Number: US-JNJFOC-20220241739

PATIENT
  Age: 28 Year
  Sex: Female
  Weight: 60 kg

DRUGS (2)
  1. INFLIXIMAB [Suspect]
     Active Substance: INFLIXIMAB
     Indication: Inflammatory bowel disease
     Dosage: LAST DATE OF ADMINISTRATION 05-OCT-2016
     Route: 042
     Dates: start: 20071121
  2. STELARA [Concomitant]
     Active Substance: USTEKINUMAB
     Indication: Inflammatory bowel disease

REACTIONS (1)
  - Intestinal resection [Not Recovered/Not Resolved]

NARRATIVE: CASE EVENT DATE: 20211020
